FAERS Safety Report 5665548-0 (Version None)
Quarter: 2008Q1

REPORT INFORMATION
  Report Type: 
  Country: None (occurrence: None)
  Receive Date: 20080314
  Receipt Date: 20071207
  Transmission Date: 20080703
  Serious: No
  Sender: FDA-Public Use
  Company Number: US-ABBOTT-07P-163-0428630-00

PATIENT
  Sex: Female

DRUGS (2)
  1. HUMIRA [Suspect]
     Indication: SPONDYLOARTHROPATHY
     Route: 058
     Dates: start: 20070901
  2. HUMIRA [Suspect]
     Route: 058
     Dates: start: 20070501, end: 20070901

REACTIONS (4)
  - BALANCE DISORDER [None]
  - DIZZINESS [None]
  - MIDDLE INSOMNIA [None]
  - NAUSEA [None]
